FAERS Safety Report 5980743-9 (Version None)
Quarter: 2008Q4

REPORT INFORMATION
  Report Type: 
  Country: None (occurrence: None)
  Receive Date: 20081205
  Receipt Date: 20080401
  Transmission Date: 20090506
  Serious: No
  Sender: FDA-Public Use
  Company Number: A0718611A

PATIENT
  Age: 73 Year
  Sex: Female

DRUGS (1)
  1. COMMIT [Suspect]

REACTIONS (9)
  - COLD SWEAT [None]
  - DRY MOUTH [None]
  - EYE IRRITATION [None]
  - FEELING ABNORMAL [None]
  - FEELING HOT [None]
  - NAUSEA [None]
  - NICOTINE DEPENDENCE [None]
  - OCULAR DISCOMFORT [None]
  - PARAESTHESIA [None]
